FAERS Safety Report 6304365-5 (Version None)
Quarter: 2009Q3

REPORT INFORMATION
  Report Type: 
  Country: None (occurrence: None)
  Receive Date: 20090811
  Receipt Date: 20090805
  Transmission Date: 20100115
  Serious: Yes (Death, Hospitalization, Other)
  Sender: FDA-Public Use
  Company Number: FR-BAYER-200927554GPV

PATIENT
  Age: 83 Year
  Sex: Male
  Weight: 60 kg

DRUGS (14)
  1. FLUDARA [Suspect]
     Indication: CHRONIC LYMPHOCYTIC LEUKAEMIA
     Dosage: 5 CYCLES
     Route: 048
     Dates: start: 20080905, end: 20081231
  2. PREVISCAN [Suspect]
     Indication: ARRHYTHMIA
     Route: 048
     Dates: start: 20081130, end: 20090522
  3. MABTHERA [Suspect]
     Indication: CHRONIC LYMPHOCYTIC LEUKAEMIA
     Dosage: 5 CYCLES
     Route: 042
     Dates: start: 20080905, end: 20081231
  4. ENDOXAN [Suspect]
     Indication: CHRONIC LYMPHOCYTIC LEUKAEMIA
     Dosage: 5 CYCLES
     Route: 042
     Dates: start: 20080905, end: 20081231
  5. METFORMIN [Concomitant]
  6. AMAREL [Concomitant]
  7. GLUCOR [Concomitant]
  8. NISISCO [Concomitant]
  9. AMLOR [Concomitant]
  10. HYPERIUM [Concomitant]
  11. PERMIXON [Concomitant]
  12. FLECAINE LP 100 [Concomitant]
     Indication: ARRHYTHMIA
     Dosage: TOTAL DAILY DOSE: 100 MG
     Dates: start: 20081101
  13. STABLON [Concomitant]
     Dates: start: 20090604, end: 20090606
  14. STABLON [Concomitant]
     Dates: start: 20090101, end: 20090529

REACTIONS (14)
  - AGRANULOCYTOSIS [None]
  - ALTERED STATE OF CONSCIOUSNESS [None]
  - BILIARY NEOPLASM [None]
  - CEREBRAL HAEMORRHAGE [None]
  - DEPRESSED LEVEL OF CONSCIOUSNESS [None]
  - DUODENAL PERFORATION [None]
  - FALL [None]
  - FEBRILE BONE MARROW APLASIA [None]
  - HAEMODYNAMIC INSTABILITY [None]
  - HYPONATRAEMIA [None]
  - PANCREATIC NEOPLASM [None]
  - PANCYTOPENIA [None]
  - PERITONITIS [None]
  - TRAUMATIC HAEMATOMA [None]
